FAERS Safety Report 7544280-2 (Version None)
Quarter: 2011Q2

REPORT INFORMATION
  Report Type: 
  Country: None (occurrence: None)
  Receive Date: 20110613
  Receipt Date: 20071016
  Transmission Date: 20111010
  Serious: Yes (Death, Hospitalization)
  Sender: FDA-Public Use
  Company Number: PHFR2007GB02672

PATIENT
  Sex: Male

DRUGS (1)
  1. CLOZAPINE [Suspect]
     Indication: SCHIZOPHRENIA
     Route: 048
     Dates: start: 19990713

REACTIONS (8)
  - METASTASES TO CENTRAL NERVOUS SYSTEM [None]
  - HEMIPARESIS [None]
  - SOMNOLENCE [None]
  - FALL [None]
  - CONFUSIONAL STATE [None]
  - WHITE BLOOD CELL COUNT INCREASED [None]
  - LUNG CANCER METASTATIC [None]
  - NEUTROPHIL COUNT INCREASED [None]
